FAERS Safety Report 20763702 (Version 4)
Quarter: 2022Q2

REPORT INFORMATION
  Report Type: Spontaneous
  Country: US (occurrence: US)
  Receive Date: 20220428
  Receipt Date: 20220611
  Transmission Date: 20220721
  Serious: Yes (Other)
  Sender: FDA-Public Use
  Company Number: US-JNJFOC-20220445963

PATIENT
  Age: 75 Year
  Sex: Male

DRUGS (4)
  1. ZYTIGA [Suspect]
     Active Substance: ABIRATERONE ACETATE
     Indication: Product used for unknown indication
     Dosage: TWO 500MG TWICE A DAY.
     Route: 048
     Dates: start: 20210805, end: 20220426
  2. OPSUMIT [Concomitant]
     Active Substance: MACITENTAN
     Dosage: 1 TABLET BY?MOUTH DAILY
     Route: 048
  3. MORNIFLUMATE [Concomitant]
     Active Substance: MORNIFLUMATE
  4. OMEPRAZOLE [Concomitant]
     Active Substance: OMEPRAZOLE

REACTIONS (3)
  - Drug ineffective [Unknown]
  - Hepatic neoplasm [Unknown]
  - Prostatic specific antigen increased [Unknown]

NARRATIVE: CASE EVENT DATE: 20210805
